FAERS Safety Report 11788276 (Version 1)
Quarter: 2015Q4

REPORT INFORMATION
  Report Type: Spontaneous
  Country: US (occurrence: US)
  Receive Date: 20151201
  Receipt Date: 20151201
  Transmission Date: 20160305
  Serious: Yes (Other)
  Sender: FDA-Public Use
  Company Number: US-JNJFOC-20151119801

PATIENT
  Sex: Male
  Weight: 63.5 kg

DRUGS (2)
  1. TYLENOL EXTRA STRENGTH [Suspect]
     Active Substance: ACETAMINOPHEN
     Indication: PRODUCT USED FOR UNKNOWN INDICATION
     Route: 065
  2. ADVIL [Concomitant]
     Active Substance: IBUPROFEN
     Indication: PRODUCT USED FOR UNKNOWN INDICATION
     Dosage: 7-8 YEARS
     Route: 065

REACTIONS (8)
  - Gastric disorder [None]
  - Product physical issue [None]
  - Surgery [Unknown]
  - Incorrect product storage [None]
  - Neck surgery [Unknown]
  - Gastrooesophageal reflux disease [Unknown]
  - Product taste abnormal [None]
  - Product solubility abnormal [Unknown]
